FAERS Safety Report 16414124 (Version 1)
Quarter: 2019Q2

REPORT INFORMATION
  Report Type: Spontaneous
  Country: CN (occurrence: CN)
  Receive Date: 20190611
  Receipt Date: 20190611
  Transmission Date: 20190711
  Serious: Yes (Other)
  Sender: FDA-Public Use
  Company Number: CN-ASTRAZENECA-2019SE85144

PATIENT
  Age: 17730 Day
  Sex: Female
  Weight: 72 kg

DRUGS (1)
  1. FORXIGA [Suspect]
     Active Substance: DAPAGLIFLOZIN
     Indication: HYPERGLYCAEMIA
     Route: 048
     Dates: start: 20190523, end: 20190526

REACTIONS (1)
  - Ketoacidosis [Recovered/Resolved]

NARRATIVE: CASE EVENT DATE: 20190526
